FAERS Safety Report 6221341-1 (Version None)
Quarter: 2009Q2

REPORT INFORMATION
  Report Type: 
  Country: None (occurrence: None)
  Receive Date: 20090610
  Receipt Date: 20090601
  Transmission Date: 20091009
  Serious: Yes (Death)
  Sender: FDA-Public Use
  Company Number: US-AMGEN-US349741

PATIENT
  Sex: Female

DRUGS (12)
  1. NPLATE [Suspect]
     Indication: IDIOPATHIC THROMBOCYTOPENIC PURPURA
     Route: 065
     Dates: start: 20090416
  2. CORTICOSTEROID NOS [Concomitant]
     Route: 065
     Dates: start: 20050309
  3. IMMUNOGLOBULINS [Concomitant]
     Route: 065
     Dates: start: 20090310, end: 20090312
  4. RITUXIMAB [Concomitant]
     Dates: start: 20090320, end: 20090416
  5. ALPRAZOLAM [Concomitant]
     Route: 065
  6. CELEXA [Concomitant]
     Route: 065
  7. NEURONTIN [Concomitant]
     Route: 065
  8. LISINOPRIL [Concomitant]
     Route: 065
  9. SKELAXIN [Concomitant]
     Route: 065
  10. OXYBUTYNIN [Concomitant]
     Route: 065
  11. DILANTIN [Concomitant]
     Route: 065
  12. PREDNISONE [Concomitant]
     Route: 065

REACTIONS (1)
  - DEATH [None]
